FAERS Safety Report 19443100 (Version 1)
Quarter: 2021Q2

REPORT INFORMATION
  Report Type: Other
  Country: US (occurrence: US)
  Receive Date: 20210621
  Receipt Date: 20210621
  Transmission Date: 20210717
  Serious: No
  Sender: FDA-Public Use
  Company Number: US-ACORDA-ACO_168920_2021

PATIENT
  Age: 67 Year
  Sex: Male

DRUGS (4)
  1. INBRIJA [Suspect]
     Active Substance: LEVODOPA
     Indication: ON AND OFF PHENOMENON
  2. ROPINIROLE. [Concomitant]
     Active Substance: ROPINIROLE
     Indication: PRODUCT USED FOR UNKNOWN INDICATION
     Dosage: 12 MG; 1 PILL AT NIGHT
     Route: 065
  3. RYTARY [Concomitant]
     Active Substance: CARBIDOPA\LEVODOPA
     Indication: PRODUCT USED FOR UNKNOWN INDICATION
     Dosage: 2 PILLS THREE TIMES A DAY
     Route: 065
  4. INBRIJA [Suspect]
     Active Substance: LEVODOPA
     Indication: PARKINSON^S DISEASE
     Dosage: 2 DOSAGE FORM, PRN; NOT TO EXCEED 5 DOSES A DAY
     Dates: start: 20210428

REACTIONS (5)
  - Cough [Recovering/Resolving]
  - Product residue present [Unknown]
  - Intentional underdose [Unknown]
  - Drug effect less than expected [Unknown]
  - Nasal discharge discolouration [Not Recovered/Not Resolved]

NARRATIVE: CASE EVENT DATE: 20210428
